FAERS Safety Report 15403058 (Version 1)
Quarter: 2018Q3

REPORT INFORMATION
  Report Type: Spontaneous
  Country: KP (occurrence: KP)
  Receive Date: 20180918
  Receipt Date: 20180918
  Transmission Date: 20181010
  Serious: Yes (Life-Threatening, Disabling, Other)
  Sender: FDA-Public Use
  Company Number: None

PATIENT
  Age: 23 Year
  Sex: Male
  Weight: 76 kg

DRUGS (3)
  1. PROPECIA [Suspect]
     Active Substance: FINASTERIDE
     Indication: ALOPECIA
     Dosage: ?          QUANTITY:1 TABLET(S);?
     Route: 048
     Dates: start: 20170123, end: 20170927
  2. VITAMIN B [Concomitant]
     Active Substance: VITAMIN B
  3. VITAMIN C [Concomitant]
     Active Substance: ASCORBIC ACID

REACTIONS (13)
  - Suicidal ideation [None]
  - Loss of libido [None]
  - Tinnitus [None]
  - Fatigue [None]
  - Cognitive disorder [None]
  - Loss of personal independence in daily activities [None]
  - Dry skin [None]
  - Dry eye [None]
  - Insomnia [None]
  - Depression [None]
  - Amnesia [None]
  - Erectile dysfunction [None]
  - Vision blurred [None]

NARRATIVE: CASE EVENT DATE: 20171213
